FAERS Safety Report 11388536 (Version 1)
Quarter: 2015Q3

REPORT INFORMATION
  Report Type: Spontaneous
  Country: US (occurrence: US)
  Receive Date: 20150817
  Receipt Date: 20150817
  Transmission Date: 20151125
  Serious: Yes (Hospitalization)
  Sender: FDA-Public Use
  Company Number: US-BAUSCH-BL-2015-019547

PATIENT
  Age: 48 Year
  Sex: Male
  Weight: 77.18 kg

DRUGS (1)
  1. XENAZINE [Suspect]
     Active Substance: TETRABENAZINE
     Indication: HUNTINGTON^S DISEASE
     Dosage: 75 MG IN THE MORNING AND EVENING AND 50 MG IN THE AFTERNOON
     Route: 048
     Dates: start: 20140801

REACTIONS (2)
  - Hospitalisation [Unknown]
  - Prescribed overdose [Unknown]
